FAERS Safety Report 24755001 (Version 1)
Quarter: 2024Q4

REPORT INFORMATION
  Report Type: Spontaneous
  Country: US (occurrence: US)
  Receive Date: 20241219
  Receipt Date: 20241219
  Transmission Date: 20250115
  Serious: Yes (Death, Other)
  Sender: ABBVIE
  Company Number: US-ABBVIE-6050118

PATIENT
  Age: 21 Year
  Sex: Male
  Weight: 66.7 kg

DRUGS (2)
  1. VENETOCLAX [Suspect]
     Active Substance: VENETOCLAX
     Indication: Product used for unknown indication
     Route: 048
     Dates: start: 20240113, end: 20240117
  2. DECITABINE [Concomitant]
     Active Substance: DECITABINE
     Indication: Product used for unknown indication
     Dates: start: 20240113, end: 20240117

REACTIONS (5)
  - B-cell type acute leukaemia [Fatal]
  - Acute respiratory failure [Fatal]
  - Germ cell neoplasm [Unknown]
  - Scrotal swelling [Unknown]
  - Pulmonary alveolar haemorrhage [Fatal]

NARRATIVE: CASE EVENT DATE: 20240101
